FAERS Safety Report 14928774 (Version 1)
Quarter: 2018Q2

REPORT INFORMATION
  Report Type: Spontaneous
  Country: PT (occurrence: PT)
  Receive Date: 20180523
  Receipt Date: 20180523
  Transmission Date: 20180711
  Serious: Yes (Death, Hospitalization, Other)
  Sender: FDA-Public Use
  Company Number: PT-MYLANLABS-2018M1033851

PATIENT
  Age: 77 Year
  Sex: Male

DRUGS (5)
  1. PREDNISOLONE. [Suspect]
     Active Substance: PREDNISOLONE
     Indication: IMMUNOSUPPRESSANT DRUG THERAPY
     Dosage: INDUCTION DOSE UNKNOWN; IT WAS FOLLOWED BY MAINTENANCE DOSE OF 5 MG ID
     Route: 065
     Dates: start: 2003
  2. MYCOPHENOLATE MOFETIL. [Suspect]
     Active Substance: MYCOPHENOLATE MOFETIL
     Indication: IMMUNOSUPPRESSANT DRUG THERAPY
     Dosage: INDUCTION DOSE UNKNOWN; IT WAS FOLLOWED BY MAINTENANCE DOSE OF 500MG TWICE DAILY
     Route: 065
     Dates: start: 2003, end: 2017
  3. THYMOGLOBULIN [Suspect]
     Active Substance: LAPINE T-LYMPHOCYTE IMMUNE GLOBULIN
     Indication: IMMUNOSUPPRESSANT DRUG THERAPY
     Route: 065
     Dates: start: 2003
  4. CYCLOSPORINE. [Suspect]
     Active Substance: CYCLOSPORINE
     Indication: IMMUNOSUPPRESSANT DRUG THERAPY
     Dosage: INDUCTION DOSE UNKNOWN; IT WAS FOLLOWED BY MAINTENANCE DOSE OF 50MG TWICE DAILY.
     Route: 065
     Dates: start: 2003, end: 2017
  5. WARFARIN [Concomitant]
     Active Substance: WARFARIN
     Indication: ATRIAL FIBRILLATION
     Route: 065
     Dates: end: 2017

REACTIONS (6)
  - Clostridium difficile infection [Recovered/Resolved]
  - Post transplant lymphoproliferative disorder [Fatal]
  - Pseudomembranous colitis [Recovered/Resolved]
  - Toxicity to various agents [Unknown]
  - Urinary tract infection [Unknown]
  - Cytomegalovirus infection [Recovered/Resolved]

NARRATIVE: CASE EVENT DATE: 200310
